FAERS Safety Report 14624407 (Version 3)
Quarter: 2018Q2

REPORT INFORMATION
  Report Type: Spontaneous
  Country: JP (occurrence: JP)
  Receive Date: 20180312
  Receipt Date: 20180502
  Transmission Date: 20180711
  Serious: Yes (Life-Threatening)
  Sender: FDA-Public Use
  Company Number: JP-BAYER-2018-040364

PATIENT
  Age: 66 Year
  Sex: Male
  Weight: 42.3 kg

DRUGS (14)
  1. REBAMIPIDE [Concomitant]
     Active Substance: REBAMIPIDE
     Indication: OSTEITIS
     Dosage: 100 MG, BID
     Route: 048
  2. MIYA-BM [Concomitant]
     Active Substance: CLOSTRIDIUM BUTYRICUM SPORES STRAIN M-55
     Indication: COLITIS ULCERATIVE
     Dosage: 40 MG, TID
     Route: 048
  3. MOHRUS [Concomitant]
     Active Substance: KETOPROFEN
     Indication: SPINAL OSTEOARTHRITIS
     Dosage: 40MG,ATTACH ONE PIECE ONE DAY
  4. EVIPROSTAT [Concomitant]
     Active Substance: CHIMAPHILA UMBELLATA\MANGANESE CHLORIDE\POPULUS TREMULOIDES\SODIUM TAUROCHOLATE
     Indication: BENIGN PROSTATIC HYPERPLASIA
     Dosage: UNK UNK, TID
     Route: 048
  5. MOSAPRIDE CITRATE [Concomitant]
     Active Substance: MOSAPRIDE CITRATE
     Indication: OSTEITIS
     Dosage: 5 MG, TID
     Route: 048
     Dates: start: 20171030
  6. CIPROXAN-I.V.400 [Suspect]
     Active Substance: CIPROFLOXACIN
     Indication: GASTROENTERITIS
     Dosage: 400 MG, BID
     Route: 041
     Dates: start: 20171031, end: 20171102
  7. PRIMPERAN [Concomitant]
     Active Substance: METOCLOPRAMIDE HYDROCHLORIDE
     Indication: OSTEITIS
     Dosage: 5 MG, TID
     Route: 048
     Dates: start: 20171027
  8. CRAVIT [Suspect]
     Active Substance: LEVOFLOXACIN
     Indication: PROSTATITIS
     Dosage: 500 MG, QD
     Route: 048
     Dates: start: 20171018, end: 20171025
  9. BONALON [Concomitant]
     Active Substance: ALENDRONATE SODIUM
     Indication: OSTEOPOROSIS
     Dosage: 35 MG, OW
     Route: 048
  10. LOXOPROFEN [Concomitant]
     Active Substance: LOXOPROFEN
     Indication: SPINAL OSTEOARTHRITIS
     Dosage: 60 MG, BID
     Route: 048
  11. DUTASTERIDE. [Concomitant]
     Active Substance: DUTASTERIDE
     Indication: BENIGN PROSTATIC HYPERPLASIA
     Dosage: 0.5 MG, QD
     Route: 048
  12. ASACOL [Concomitant]
     Active Substance: MESALAMINE
     Indication: COLITIS ULCERATIVE
     Dosage: 1200 MG, TID
     Route: 048
  13. URIEF [Concomitant]
     Active Substance: SILODOSIN
     Indication: BENIGN PROSTATIC HYPERPLASIA
     Dosage: 4 MG, BID
     Route: 048
  14. SPIRIVA [Concomitant]
     Active Substance: TIOTROPIUM BROMIDE MONOHYDRATE
     Indication: EMPHYSEMA
     Dosage: 5 ?G, QD
     Route: 055

REACTIONS (7)
  - Pyrexia [Recovered/Resolved]
  - Abdominal distension [Recovered/Resolved]
  - Flatulence [Recovered/Resolved]
  - Clostridium difficile infection [Recovered/Resolved]
  - Megacolon [Recovered/Resolved]
  - Infrequent bowel movements [Recovered/Resolved]
  - Diarrhoea [Recovered/Resolved]

NARRATIVE: CASE EVENT DATE: 20171102
